FAERS Safety Report 9222665 (Version 1)
Quarter: 2013Q2

REPORT INFORMATION
  Report Type: Spontaneous
  Country: NZ (occurrence: NZ)
  Receive Date: 20130410
  Receipt Date: 20130410
  Transmission Date: 20140414
  Serious: Yes (Other)
  Sender: FDA-Public Use
  Company Number: PHHY2013NZ034546

PATIENT
  Age: 62 Year
  Sex: Male

DRUGS (4)
  1. AMANTADINE [Suspect]
     Route: 048
  2. ASPIRIN [Concomitant]
     Route: 048
  3. DIPYRIDAMOLE [Concomitant]
     Route: 048
  4. SOLIFENACIN [Concomitant]
     Route: 048

REACTIONS (3)
  - Pain in extremity [Unknown]
  - Oedema peripheral [Unknown]
  - Headache [Unknown]
